FAERS Safety Report 6402942-4 (Version None)
Quarter: 2009Q4

REPORT INFORMATION
  Report Type: 
  Country: None (occurrence: None)
  Receive Date: 20091016
  Receipt Date: 20091006
  Transmission Date: 20100525
  Serious: Yes (Other)
  Sender: FDA-Public Use
  Company Number: JP-SANOFI-SYNTHELABO-A01200910509

PATIENT
  Sex: Female

DRUGS (4)
  1. KYTRIL [Concomitant]
     Indication: PREMEDICATION
     Route: 041
     Dates: start: 20080805, end: 20090929
  2. FLUOROURACIL [Concomitant]
     Indication: COLON CANCER
     Dosage: 600MG/BODY BOLUS THEN 2500MG/BODY/D 1-2 AS CONTINUOUS INFUSION
     Route: 041
     Dates: start: 20080805
  3. ISOVORIN [Concomitant]
     Indication: COLON CANCER
     Dosage: 225 MG
     Route: 041
     Dates: start: 20080805, end: 20090929
  4. ELPLAT [Suspect]
     Indication: COLON CANCER
     Dosage: 100 MG
     Route: 041
     Dates: start: 20090929, end: 20090929

REACTIONS (1)
  - SHOCK [None]
